FAERS Safety Report 4645213-9 (Version None)
Quarter: 2005Q2

REPORT INFORMATION
  Report Type: 
  Country: None (occurrence: None)
  Receive Date: 20050426
  Receipt Date: 20041203
  Transmission Date: 20051028
  Serious: Yes (Hospitalization)
  Sender: FDA-Public Use
  Company Number: GB-GLAXOSMITHKLINE-B0359747A

PATIENT
  Sex: Male

DRUGS (6)
  1. PAROXETINE HCL [Suspect]
     Route: 065
     Dates: start: 20010913, end: 20020701
  2. OLANZAPINE [Concomitant]
     Indication: PSYCHOTIC DISORDER
     Dosage: 10MG PER DAY
     Route: 065
     Dates: end: 20020101
  3. VALPROATE SODIUM [Concomitant]
     Dosage: 500MG AT NIGHT
     Route: 065
     Dates: start: 20030101
  4. LOFEPRAMINE [Concomitant]
     Dosage: 140MG AT NIGHT
     Route: 065
     Dates: start: 20040601, end: 20040801
  5. CITALOPRAM HYDROBROMIDE [Concomitant]
     Dates: start: 20040101, end: 20040101
  6. RISPERIDONE [Concomitant]
     Route: 065
     Dates: start: 20020701, end: 20040101

REACTIONS (5)
  - ANXIETY [None]
  - DEPRESSION [None]
  - HYPOMANIA [None]
  - SUICIDE ATTEMPT [None]
  - WEIGHT INCREASED [None]
